FAERS Safety Report 18108122 (Version 1)
Quarter: 2020Q3

REPORT INFORMATION
  Report Type: Spontaneous
  Country: US (occurrence: US)
  Receive Date: 20200804
  Receipt Date: 20200804
  Transmission Date: 20201103
  Serious: No
  Sender: FDA-Public Use
  Company Number: None

PATIENT
  Age: 63 Year
  Sex: Male
  Weight: 67.5 kg

DRUGS (19)
  1. XPOVIO [Suspect]
     Active Substance: SELINEXOR
     Indication: PLASMA CELL MYELOMA
     Dosage: ?          OTHER FREQUENCY:WEEKLY;?
     Route: 048
     Dates: start: 20200616
  2. DEXAMETHASONE. [Concomitant]
     Active Substance: DEXAMETHASONE
  3. TIMOPTIC [Concomitant]
     Active Substance: TIMOLOL MALEATE
  4. ASPIRIN. [Concomitant]
     Active Substance: ASPIRIN
  5. ZYPREXA [Concomitant]
     Active Substance: OLANZAPINE
  6. IBUPROFEN. [Concomitant]
     Active Substance: IBUPROFEN
  7. MEDROL [Concomitant]
     Active Substance: METHYLPREDNISOLONE
  8. ACYCLOVIR. [Concomitant]
     Active Substance: ACYCLOVIR
  9. METOPROLOL. [Concomitant]
     Active Substance: METOPROLOL
  10. PERCOCET [Concomitant]
     Active Substance: ACETAMINOPHEN\OXYCODONE HYDROCHLORIDE
  11. SENNA [Concomitant]
     Active Substance: SENNA LEAF\SENNOSIDES\SENNOSIDES A AND B
  12. BACTRIM [Concomitant]
     Active Substance: SULFAMETHOXAZOLE\TRIMETHOPRIM
  13. VARUBI [Concomitant]
     Active Substance: ROLAPITANT
  14. ZOFRAN [Concomitant]
     Active Substance: ONDANSETRON HYDROCHLORIDE
  15. ACULAR [Concomitant]
     Active Substance: KETOROLAC TROMETHAMINE
  16. POLYTRIM [Concomitant]
     Active Substance: POLYMYXIN B SULFATE\TRIMETHOPRIM SULFATE
  17. VELCADE [Concomitant]
     Active Substance: BORTEZOMIB
  18. BRIMONIDINE [Concomitant]
     Active Substance: BRIMONIDINE TARTRATE
  19. PRED FORTE [Concomitant]
     Active Substance: PREDNISOLONE ACETATE

REACTIONS (1)
  - Fall [None]

NARRATIVE: CASE EVENT DATE: 20200804
